FAERS Safety Report 5782719-3 (Version None)
Quarter: 2008Q2

REPORT INFORMATION
  Report Type: 
  Country: None (occurrence: None)
  Receive Date: 20080619
  Receipt Date: 20080605
  Transmission Date: 20081010
  Serious: Yes (Death)
  Sender: FDA-Public Use
  Company Number: 2008001319

PATIENT
  Age: 53 Year
  Sex: Male

DRUGS (12)
  1. ERLOTINIB (ERLOTINIB) (TABLET) (ERLOTINIB) [Suspect]
     Indication: NON-SMALL CELL LUNG CANCER
     Dosage: (150 MG, QD), ORAL
     Route: 048
     Dates: start: 20080523
  2. FUROSEMIDE [Concomitant]
  3. HYDROMORPHONE HCL [Concomitant]
  4. PREGABALIN [Concomitant]
  5. MELOXICAM [Concomitant]
  6. POTASSIUM CHLORIDE [Concomitant]
  7. SENOKOT-S (SENOKOT-S) [Concomitant]
  8. SPIRONOLACTONE [Concomitant]
  9. TRIAMTERENE/HCTZ (TRIAMTERENE) [Concomitant]
  10. CHLORPHENIRAMINE MALEATE [Concomitant]
  11. METHADONE HCL [Concomitant]
  12. OMEPRAZOLE [Concomitant]

REACTIONS (7)
  - BALANCE DISORDER [None]
  - CANCER PAIN [None]
  - INCOHERENT [None]
  - OEDEMA [None]
  - PULMONARY EMBOLISM [None]
  - SUDDEN DEATH [None]
  - UNRESPONSIVE TO STIMULI [None]
